FAERS Safety Report 21190494 (Version 1)
Quarter: 2022Q3

REPORT INFORMATION
  Report Type: Spontaneous
  Country: US (occurrence: US)
  Receive Date: 20220809
  Receipt Date: 20220809
  Transmission Date: 20221027
  Serious: Yes (Hospitalization, Other)
  Sender: FDA-Public Use
  Company Number: US-FreseniusKabi-FK202211011

PATIENT
  Age: 77 Year
  Sex: Male

DRUGS (5)
  1. HEPARIN [Suspect]
     Active Substance: HEPARIN SODIUM
     Indication: Thrombosis prophylaxis
     Dosage: HIGH-DOSE UNFRACTIONATED HEPARIN DRIP
  2. HEPARIN [Suspect]
     Active Substance: HEPARIN SODIUM
     Indication: Pulmonary embolism
     Dosage: HIGH-DOSE HEPARIN WAS RESTARTED ON HOSPITAL DAY 6
  3. KAYEXALATE [Concomitant]
     Active Substance: SODIUM POLYSTYRENE SULFONATE
     Indication: Blood potassium increased
     Dosage: SODIUM POLYSTYRENE
  4. INSULIN NOS [Concomitant]
     Active Substance: INSULIN NOS
     Indication: Blood potassium increased
  5. DEXTROSE [Concomitant]
     Active Substance: DEXTROSE
     Indication: Blood potassium increased

REACTIONS (2)
  - Blood aldosterone decreased [Unknown]
  - Hyperkalaemia [Recovered/Resolved]
